FAERS Safety Report 9015403 (Version 1)
Quarter: 2013Q1

REPORT INFORMATION
  Report Type: Spontaneous
  Country: US (occurrence: None)
  Receive Date: 20130103
  Receipt Date: 20130103
  Transmission Date: 20140127
  Serious: Yes (Hospitalization)
  Sender: FDA-Public Use
  Company Number: 2012120110

PATIENT
  Age: 74 Year
  Sex: Female

DRUGS (10)
  1. TOREM [Suspect]
     Route: 048
     Dates: end: 20121031
  2. INDAPAMIDE [Suspect]
     Route: 048
     Dates: start: 20120930, end: 20121031
  3. AMIODARONE [Suspect]
     Route: 048
     Dates: end: 20121031
  4. SINTROM (ACENOCOUMAROL) [Concomitant]
  5. BELOC ZOK (METOPROLOL SUCCINATE) [Concomitant]
  6. AMLODIPINE (AMLODIPINE) [Concomitant]
  7. SORTIS (ATORVASTATIN CALCIUM) [Concomitant]
  8. NOVONORM (REPAGLINIDE) [Concomitant]
  9. JANUVIA (SITAGLIPTIN PHOSPHATE) [Concomitant]
  10. KCL (POTASSIUM CHLORIDE) [Concomitant]

REACTIONS (12)
  - Syncope [None]
  - Asthenia [None]
  - Bradycardia [None]
  - Atrial fibrillation [None]
  - Ventricular tachycardia [None]
  - Hypokalaemia [None]
  - General physical health deterioration [None]
  - Blood pressure diastolic decreased [None]
  - Dehydration [None]
  - Pseudohyponatraemia [None]
  - Hyperglycaemia [None]
  - Cushing^s syndrome [None]
